FAERS Safety Report 10760888 (Version 1)
Quarter: 2015Q1

REPORT INFORMATION
  Report Type: Spontaneous
  Country: US (occurrence: None)
  Receive Date: 20150203
  Receipt Date: 20150203
  Transmission Date: 20150721
  Serious: No
  Sender: FDA-Public Use
  Company Number: None

PATIENT
  Age: 31 Year
  Sex: Female

DRUGS (3)
  1. BUPRENORPHINE HCL [Suspect]
     Active Substance: BUPRENORPHINE HYDROCHLORIDE
     Indication: POSTPARTUM STATE
     Route: 048
     Dates: start: 20141001
  2. BUPRENORPHINE HCL [Suspect]
     Active Substance: BUPRENORPHINE HYDROCHLORIDE
     Indication: PREGNANCY
     Route: 048
     Dates: start: 20141001
  3. BUPRENORPHINE HCL [Suspect]
     Active Substance: BUPRENORPHINE HYDROCHLORIDE
     Indication: BREAST FEEDING
     Route: 048
     Dates: start: 20141001

REACTIONS (2)
  - Breast feeding [None]
  - Product dosage form issue [None]

NARRATIVE: CASE EVENT DATE: 20141201
